FAERS Safety Report 9885470 (Version 1)
Quarter: 2014Q1

REPORT INFORMATION
  Report Type: Spontaneous
  Country: AT (occurrence: AT)
  Receive Date: 20140210
  Receipt Date: 20140210
  Transmission Date: 20141002
  Serious: Yes (Hospitalization)
  Sender: FDA-Public Use
  Company Number: AT-TEVA-460866ISR

PATIENT
  Age: 80 Year
  Sex: Male

DRUGS (9)
  1. FUROSEMIDE [Suspect]
     Route: 065
  2. RIVAROXABAN [Suspect]
     Indication: ATRIAL FIBRILLATION
     Dosage: 20 MILLIGRAM DAILY; 20MG/D
     Route: 065
     Dates: start: 201211, end: 201301
  3. RIVAROXABAN [Suspect]
     Dosage: 20 MILLIGRAM DAILY;
     Route: 065
     Dates: start: 201301
  4. HYDROCHLOROTHIAZIDE [Suspect]
     Route: 065
  5. ENALAPRIL [Concomitant]
     Route: 065
  6. ALLOPURINOL [Concomitant]
     Route: 065
  7. BISOPROLOL [Concomitant]
     Route: 065
  8. SIMVASTATIN [Concomitant]
     Route: 065
  9. AMLODIPINE [Concomitant]
     Route: 065

REACTIONS (5)
  - Ischaemic stroke [Recovering/Resolving]
  - Urosepsis [Unknown]
  - Epididymitis [Unknown]
  - Diarrhoea [Unknown]
  - Convulsion [Unknown]
